FAERS Safety Report 9914736 (Version 3)
Quarter: 2014Q2

REPORT INFORMATION
  Report Type: Report from Study
  Country: TW (occurrence: TW)
  Receive Date: 20140220
  Receipt Date: 20140522
  Transmission Date: 20141212
  Serious: Yes (Hospitalization)
  Sender: FDA-Public Use
  Company Number: TW-ABBVIE-14P-153-1201855-00

PATIENT
  Age: 64 Year
  Sex: Female
  Weight: 48 kg

DRUGS (1)
  1. HUMIRA [Suspect]
     Indication: RHEUMATOID ARTHRITIS
     Route: 058
     Dates: start: 20131217, end: 20140128

REACTIONS (4)
  - Discomfort [Recovered/Resolved]
  - Pyrexia [Recovered/Resolved]
  - Joint swelling [Recovered/Resolved]
  - Rheumatoid arthritis [Unknown]
